FAERS Safety Report 22341244 (Version 1)
Quarter: 2023Q2

REPORT INFORMATION
  Report Type: Report from Study
  Country: US (occurrence: US)
  Receive Date: 20230518
  Receipt Date: 20230518
  Transmission Date: 20230721
  Serious: Yes (Other)
  Sender: FDA-Public Use
  Company Number: US-TAKEDA-2023TUS048528

PATIENT
  Sex: Female

DRUGS (1)
  1. VEDOLIZUMAB [Suspect]
     Active Substance: VEDOLIZUMAB
     Indication: Product used for unknown indication
     Dosage: 300 MILLIGRAM, Q6WEEKS
     Route: 042

REACTIONS (7)
  - Multiple sclerosis [Unknown]
  - Memory impairment [Unknown]
  - Hypoaesthesia [Unknown]
  - Pain [Unknown]
  - Product dose omission issue [Unknown]
  - Off label use [Unknown]
  - Cough [Unknown]
